FAERS Safety Report 4340536-5 (Version None)
Quarter: 2004Q2

REPORT INFORMATION
  Report Type: 
  Country: None (occurrence: None)
  Receive Date: 20040414
  Receipt Date: 20040331
  Transmission Date: 20050107
  Serious: Yes (Hospitalization)
  Sender: FDA-Public Use
  Company Number: RENA-10928

PATIENT
  Age: 61 Year
  Sex: Male
  Weight: 58 kg

DRUGS (8)
  1. RENAGEL [Suspect]
     Indication: HYPERPHOSPHATAEMIA
     Dosage: 1.5 G DAILY PO
     Route: 048
     Dates: start: 20040204, end: 20040217
  2. RENAGEL [Suspect]
     Indication: HYPERPHOSPHATAEMIA
     Dosage: 2.25 G DAILY PO
     Route: 048
     Dates: start: 20040218, end: 20040229
  3. NORVASC [Concomitant]
  4. OCTOTIAMINE RIBOVFLAVIN, CYANOCOBALAMIN, PYRIDOXINE, HYDROCHLORIDE [Concomitant]
  5. ZALTOPRPFEN [Suspect]
     Indication: ARTHRALGIA
     Dosage: 80 MG BID PO
     Route: 048
     Dates: start: 20040206, end: 20040229
  6. TEPRENONE [Concomitant]
  7. EPOGIN [Concomitant]
  8. ROCALTROL [Concomitant]

REACTIONS (8)
  - BLOOD PRESSURE DECREASED [None]
  - COLD SWEAT [None]
  - DIARRHOEA [None]
  - DUODENAL ULCER HAEMORRHAGE [None]
  - FEELING ABNORMAL [None]
  - HAEMATOCRIT DECREASED [None]
  - MELAENA [None]
  - PALLOR [None]
